FAERS Safety Report 4650800-8 (Version None)
Quarter: 2005Q2

REPORT INFORMATION
  Report Type: 
  Country: None (occurrence: None)
  Receive Date: 20050503
  Receipt Date: 20050412
  Transmission Date: 20051028
  Serious: Yes (Other)
  Sender: FDA-Public Use
  Company Number: FR-GLAXOSMITHKLINE-B0378064A

PATIENT
  Age: 36 Year
  Sex: Female

DRUGS (1)
  1. NARAMIG [Suspect]
     Indication: MIGRAINE
     Dosage: 5TAB CUMULATIVE DOSE
     Route: 048

REACTIONS (2)
  - HELLP SYNDROME [None]
  - NORMAL DELIVERY [None]
